FAERS Safety Report 6429161-X (Version None)
Quarter: 2009Q4

REPORT INFORMATION
  Report Type: 
  Country: None (occurrence: None)
  Receive Date: 20091102
  Receipt Date: 20091016
  Transmission Date: 20100525
  Serious: Yes (Hospitalization)
  Sender: FDA-Public Use
  Company Number: DSA_41856_2009

PATIENT
  Sex: Male

DRUGS (21)
  1. VASOTEC [Suspect]
     Indication: HYPERTENSION
     Dosage: (5 MG BID ORAL), (20 MG QD, ORAL)
     Route: 048
  2. BLINDED THERAPY [Suspect]
     Indication: PULMONARY HYPERTENSION
     Dosage: (20 MG TID ORAL), (40 MG TID ORAL), (20 MG TID ORAL), (20 MG BID ORAL), (20 MG QD ORAL)
     Route: 048
     Dates: start: 20090223, end: 20090604
  3. BLINDED THERAPY [Suspect]
     Indication: PULMONARY HYPERTENSION
     Dosage: (20 MG TID ORAL), (40 MG TID ORAL), (20 MG TID ORAL), (20 MG BID ORAL), (20 MG QD ORAL)
     Route: 048
     Dates: start: 20090605, end: 20090723
  4. BLINDED THERAPY [Suspect]
     Indication: PULMONARY HYPERTENSION
     Dosage: (20 MG TID ORAL), (40 MG TID ORAL), (20 MG TID ORAL), (20 MG BID ORAL), (20 MG QD ORAL)
     Route: 048
     Dates: start: 20090724, end: 20090725
  5. BLINDED THERAPY [Suspect]
     Indication: PULMONARY HYPERTENSION
     Dosage: (20 MG TID ORAL), (40 MG TID ORAL), (20 MG TID ORAL), (20 MG BID ORAL), (20 MG QD ORAL)
     Route: 048
     Dates: start: 20090726, end: 20090727
  6. BLINDED THERAPY [Suspect]
     Indication: PULMONARY HYPERTENSION
     Dosage: (20 MG TID ORAL), (40 MG TID ORAL), (20 MG TID ORAL), (20 MG BID ORAL), (20 MG QD ORAL)
     Route: 048
     Dates: start: 20090728, end: 20090729
  7. METOPROLOL [Suspect]
     Indication: RIGHT VENTRICULAR FAILURE
     Dosage: (25 MG BID ORAL)
     Route: 048
     Dates: start: 20090326, end: 20090814
  8. IMDUR [Suspect]
     Indication: RIGHT VENTRICULAR FAILURE
     Dosage: (60 MG QD ORAL)
     Route: 048
     Dates: start: 20090326, end: 20090814
  9. HYDRALAZINE HCL [Suspect]
     Indication: RIGHT VENTRICULAR FAILURE
     Dosage: (25 MG BID ORAL)
     Route: 048
     Dates: start: 20090326, end: 20090814
  10. DIGOXIN [Suspect]
     Dosage: (0.125 MG QD ORAL)
     Route: 048
  11. COUMADIN [Concomitant]
  12. DRISDOL [Concomitant]
  13. LEXAPRO [Concomitant]
  14. ALUMINIUM HYDROXIDE W/MG HYDROXID/SIMETICONE [Concomitant]
  15. ACETAMINOPHEN AND OXYCODONE HCL [Concomitant]
  16. ALPRAZOLAM [Concomitant]
  17. FUROSEMIDE [Concomitant]
  18. GABAPENTIN [Concomitant]
  19. HYDROXYUREA [Concomitant]
  20. LORAZEPAM [Concomitant]
  21. POTASSIUM CHLORIDE [Concomitant]

REACTIONS (11)
  - CEREBROVASCULAR ACCIDENT [None]
  - FALL [None]
  - HAEMATOCRIT DECREASED [None]
  - HAEMATOMA [None]
  - HAEMOGLOBIN DECREASED [None]
  - HEAD INJURY [None]
  - HEADACHE [None]
  - LACERATION [None]
  - LETHARGY [None]
  - PULMONARY ARTERIAL HYPERTENSION [None]
  - STUPOR [None]
